FAERS Safety Report 8500928-7 (Version None)
Quarter: 2012Q2

REPORT INFORMATION
  Report Type: 
  Country: None (occurrence: None)
  Receive Date: 20120405
  Receipt Date: 20100302
  Transmission Date: 20120825
  Serious: Yes (Disabling)
  Sender: FDA-Public Use
  Company Number: PHEH2008US10802

PATIENT
  Sex: Female

DRUGS (1)
  1. RECLAST [Suspect]
     Dosage: INFUSION
     Dates: start: 20081124

REACTIONS (8)
  - BACK PAIN [None]
  - DISABILITY [None]
  - ARTHRALGIA [None]
  - MYALGIA [None]
  - TOOTH DISORDER [None]
  - ABASIA [None]
  - INFLUENZA LIKE ILLNESS [None]
  - GAIT DISTURBANCE [None]
